FAERS Safety Report 10153553 (Version 2)
Quarter: 2014Q2

REPORT INFORMATION
  Report Type: Spontaneous
  Country: GB (occurrence: GB)
  Receive Date: 20140505
  Receipt Date: 20140522
  Transmission Date: 20141212
  Serious: Yes (Life-Threatening, Hospitalization, Other)
  Sender: FDA-Public Use
  Company Number: US-ASTRAZENECA-2014SE29813

PATIENT
  Age: 9 Month
  Sex: Male
  Weight: 8.2 kg

DRUGS (3)
  1. SYNAGIS [Suspect]
     Indication: PRODUCT USED FOR UNKNOWN INDICATION
     Route: 030
     Dates: start: 20131104, end: 20131104
  2. SYNAGIS [Suspect]
     Indication: PRODUCT USED FOR UNKNOWN INDICATION
     Dosage: 122.5 MG, IMMEDIATELY (STAT)
     Route: 030
     Dates: start: 20131230, end: 20131230
  3. OMEPRAZOLE [Concomitant]
     Indication: PRODUCT USED FOR UNKNOWN INDICATION
     Route: 048

REACTIONS (2)
  - Oxygen saturation abnormal [Recovered/Resolved]
  - Respiratory syncytial virus infection [Recovered/Resolved]
